FAERS Safety Report 5985284-0 (Version None)
Quarter: 2008Q4

REPORT INFORMATION
  Report Type: 
  Country: None (occurrence: None)
  Receive Date: 20081203
  Receipt Date: 20081124
  Transmission Date: 20090506
  Serious: Yes (Death, Other)
  Sender: FDA-Public Use
  Company Number: CLOF-1000331

PATIENT
  Age: 6 Year
  Sex: Female
  Weight: 16 kg

DRUGS (14)
  1. EVOLTRA (CLOFARABINE) SOLUTION FOR INFUSION [Suspect]
     Indication: ACUTE LEUKAEMIA
  2. ENDOXAN (CYCLOPHOSPHAMIDE MONOHYDRATE) [Concomitant]
  3. ETOPOSIDE [Concomitant]
  4. TAZOCILLINE (PIPERACILLIN SODIUM, TAZOBACTAM SODIUM) [Concomitant]
  5. AMIKACIN [Concomitant]
  6. FASTURTEC (RASBURICASE) [Concomitant]
  7. NUBAIN [Concomitant]
  8. ZOVIRAX [Concomitant]
  9. ZOFRAN [Concomitant]
  10. PERFALGAN (PARACETAMOL) [Concomitant]
  11. PLITICAN (ALIZAPRIDE HYDROCHLORIDE) [Concomitant]
  12. NEXIUM [Concomitant]
  13. LASIX [Concomitant]
  14. BACTRIM [Concomitant]

REACTIONS (6)
  - CAPILLARY LEAK SYNDROME [None]
  - FEBRILE BONE MARROW APLASIA [None]
  - HAEMODIALYSIS [None]
  - MULTI-ORGAN FAILURE [None]
  - RENAL FAILURE ACUTE [None]
  - RESPIRATORY FAILURE [None]
